FAERS Safety Report 4943425-8 (Version None)
Quarter: 2006Q1

REPORT INFORMATION
  Report Type: 
  Country: None (occurrence: None)
  Receive Date: 20060309
  Receipt Date: 20060219
  Transmission Date: 20060701
  Serious: Yes (Hospitalization)
  Sender: FDA-Public Use
  Company Number: 2006SP000919

PATIENT
  Age: 44 Year
  Sex: Male
  Weight: 113.3993 kg

DRUGS (7)
  1. LUNESTA [Suspect]
     Indication: PAIN
     Dosage: SEE IMAGE
     Route: 048
     Dates: start: 20051201, end: 20051201
  2. LUNESTA [Suspect]
     Indication: PAIN
     Dosage: SEE IMAGE
     Route: 048
     Dates: start: 20060117, end: 20060123
  3. LUNESTA [Suspect]
     Indication: PAIN
     Dosage: SEE IMAGE
     Route: 048
     Dates: start: 20060124, end: 20060124
  4. LUNESTA [Suspect]
     Indication: PAIN
     Dosage: SEE IMAGE
     Route: 048
     Dates: start: 20060127, end: 20060218
  5. AMBIEN [Concomitant]
  6. PERCOCET [Concomitant]
  7. FLEXERIL [Concomitant]

REACTIONS (7)
  - CONDITION AGGRAVATED [None]
  - DRUG EFFECT DECREASED [None]
  - DYSPHAGIA [None]
  - DYSPHONIA [None]
  - MIDDLE INSOMNIA [None]
  - NECK PAIN [None]
  - SHOULDER PAIN [None]
